FAERS Safety Report 11097793 (Version 5)
Quarter: 2016Q2

REPORT INFORMATION
  Report Type: Spontaneous
  Country: US (occurrence: US)
  Receive Date: 20150507
  Receipt Date: 20160420
  Transmission Date: 20160815
  Serious: Yes (Hospitalization, Other)
  Sender: FDA-Public Use
  Company Number: US-PFIZER INC-2015150843

PATIENT
  Age: 63 Year
  Sex: Male
  Weight: 93 kg

DRUGS (15)
  1. TYLENOL WITH CODEINE [Concomitant]
     Active Substance: ACETAMINOPHEN\CODEINE PHOSPHATE
     Indication: PAIN
     Dosage: UNK, 3 TIMES A DAY
     Dates: start: 201502
  2. VITAMIN D3 [Concomitant]
     Active Substance: CHOLECALCIFEROL
     Dosage: 4000 IU, 1X/DAY
  3. FUROSEMIDE. [Concomitant]
     Active Substance: FUROSEMIDE
     Indication: DIURETIC THERAPY
     Dosage: 40 MG, 2X/DAY
     Dates: start: 200511
  4. DILT-XR [Concomitant]
     Active Substance: DILTIAZEM
     Dosage: 240 MG, 1X/DAY
     Dates: start: 200511
  5. TRACLEER [Concomitant]
     Active Substance: BOSENTAN
     Indication: LUNG DISORDER
     Dosage: 125 MG, 2X/DAY
  6. OXYGEN. [Concomitant]
     Active Substance: OXYGEN
     Dosage: 5 L, DAILY
  7. IRON [Concomitant]
     Active Substance: IRON
     Dosage: 130 MG, 2X/DAY
  8. BOSENTAN. [Concomitant]
     Active Substance: BOSENTAN
     Indication: LUNG DISORDER
     Dosage: 125 MG, 2X/DAY
  9. POTASSIUM CHLORIDE. [Concomitant]
     Active Substance: POTASSIUM CHLORIDE
     Indication: LUNG DISORDER
     Dosage: 20 MG, 2X/DAY
     Dates: start: 200511
  10. PANTOPRAZOLE [Concomitant]
     Active Substance: PANTOPRAZOLE SODIUM
     Indication: LUNG DISORDER
     Dosage: 40 MG, 2X/DAY
     Dates: start: 200511
  11. ASPIRIN. [Concomitant]
     Active Substance: ASPIRIN
     Dosage: UNK (LOW DOSE)
  12. BYSTOLIC [Concomitant]
     Active Substance: NEBIVOLOL HYDROCHLORIDE
     Dosage: 2.5 MG, 1X/DAY
  13. BOSENTAN. [Concomitant]
     Active Substance: BOSENTAN
     Indication: RESPIRATORY DISORDER
  14. REVATIO [Suspect]
     Active Substance: SILDENAFIL CITRATE
     Indication: CARDIAC DISORDER
     Dosage: 20 MGX2, 3 TIMES A DAY
     Route: 048
     Dates: start: 200511
  15. REVATIO [Suspect]
     Active Substance: SILDENAFIL CITRATE
     Indication: PULMONARY HYPERTENSION

REACTIONS (9)
  - Condition aggravated [Recovering/Resolving]
  - Neoplasm malignant [Unknown]
  - Product use issue [Not Recovered/Not Resolved]
  - Dyspnoea [Not Recovered/Not Resolved]
  - Fall [Unknown]
  - Malaise [Recovered/Resolved]
  - Ankle fracture [Recovered/Resolved]
  - Chest discomfort [Not Recovered/Not Resolved]
  - Oedema [Unknown]

NARRATIVE: CASE EVENT DATE: 200511
